FAERS Safety Report 13590992 (Version 1)
Quarter: 2017Q2

REPORT INFORMATION
  Report Type: Spontaneous
  Country: US (occurrence: US)
  Receive Date: 20170529
  Receipt Date: 20170529
  Transmission Date: 20170830
  Serious: Yes (Death)
  Sender: FDA-Public Use
  Company Number: US-MALLINCKRODT-T201702171

PATIENT
  Sex: Male

DRUGS (10)
  1. ATOVAQUONE. [Concomitant]
     Active Substance: ATOVAQUONE
  2. PREDNISONE. [Concomitant]
     Active Substance: PREDNISONE
  3. DEXILANT [Concomitant]
     Active Substance: DEXLANSOPRAZOLE
  4. TACROLIMUS. [Concomitant]
     Active Substance: TACROLIMUS
  5. SODIUM BICARBONATE. [Concomitant]
     Active Substance: SODIUM BICARBONATE
  6. CALCIUM ACETATE. [Concomitant]
     Active Substance: CALCIUM ACETATE
  7. QUETIAPINE. [Concomitant]
     Active Substance: QUETIAPINE
  8. H.P. ACTHAR [Suspect]
     Active Substance: CORTICOTROPIN
     Indication: RENAL TRANSPLANT
     Dosage: 80 UNITS/1ML, TIW
     Route: 058
     Dates: start: 20170329
  9. LEFLUNOMIDE. [Concomitant]
     Active Substance: LEFLUNOMIDE
  10. VALSARTAN. [Concomitant]
     Active Substance: VALSARTAN

REACTIONS (1)
  - Death [Fatal]
